FAERS Safety Report 8152502-2 (Version None)
Quarter: 2012Q1

REPORT INFORMATION
  Report Type: 
  Country: None (occurrence: None)
  Receive Date: 20120202
  Receipt Date: 20120126
  Transmission Date: 20120608
  Serious: Yes (Hospitalization, Other)
  Sender: FDA-Public Use
  Company Number: US-145237

PATIENT
  Sex: Female
  Weight: 113.3993 kg

DRUGS (3)
  1. WINRHO SDF LIQUID [Suspect]
  2. WINRHO SDF LIQUID [Suspect]
     Indication: IDIOPATHIC THROMBOCYTOPENIC PURPURA
     Dosage: SEE IMAGE INTRAVENOUS
     Route: 042
     Dates: start: 20110725, end: 20110725
  3. WINRHO SDF LIQUID [Suspect]

REACTIONS (6)
  - HYPERBILIRUBINAEMIA [None]
  - HAEMOGLOBIN DECREASED [None]
  - BLOOD LACTATE DEHYDROGENASE INCREASED [None]
  - MOUTH HAEMORRHAGE [None]
  - RED BLOOD CELL SPHEROCYTES PRESENT [None]
  - HAEMOLYSIS [None]
